FAERS Safety Report 10211585 (Version 1)
Quarter: 2014Q2

REPORT INFORMATION
  Report Type: Spontaneous
  Country: US (occurrence: US)
  Receive Date: 20140602
  Receipt Date: 20140602
  Transmission Date: 20141212
  Serious: Yes (Other)
  Sender: FDA-Public Use
  Company Number: US-PFIZER INC-2014147692

PATIENT
  Sex: Male

DRUGS (1)
  1. REVATIO [Suspect]
     Dosage: UNK

REACTIONS (1)
  - Raynaud^s phenomenon [Unknown]
